FAERS Safety Report 4445930-X (Version None)
Quarter: 2004Q3

REPORT INFORMATION
  Report Type: 
  Country: None (occurrence: None)
  Receive Date: 20040903
  Receipt Date: 20040823
  Transmission Date: 20050211
  Serious: Yes (Other)
  Sender: FDA-Public Use
  Company Number: 2004052879

PATIENT
  Age: 65 Year
  Sex: Male

DRUGS (4)
  1. BENADRYL [Suspect]
     Indication: URTICARIA
     Dosage: 1 TABLET Q 4-6 HRS, ORAL
     Route: 048
     Dates: start: 20040716, end: 20040719
  2. CARBAMAZEPINE [Concomitant]
  3. LEVETIRACETAM [Concomitant]
  4. CLONAZEPAM [Concomitant]

REACTIONS (1)
  - CONVULSION [None]
